FAERS Safety Report 17723013 (Version 1)
Quarter: 2020Q2

REPORT INFORMATION
  Report Type: Spontaneous
  Country: CA (occurrence: CA)
  Receive Date: 20200429
  Receipt Date: 20200429
  Transmission Date: 20200714
  Serious: Yes (Life-Threatening)
  Sender: FDA-Public Use
  Company Number: CA-ROCHE-2587746

PATIENT
  Age: 42 Year
  Sex: Female

DRUGS (6)
  1. DOCETAXEL. [Suspect]
     Active Substance: DOCETAXEL
     Indication: BREAST CANCER
     Route: 042
  2. TRASTUZUMAB. [Suspect]
     Active Substance: TRASTUZUMAB
     Indication: BREAST CANCER
     Route: 065
  3. MYCOPHENOLATE MOFETIL. [Suspect]
     Active Substance: MYCOPHENOLATE MOFETIL
     Indication: ORGANISING PNEUMONIA
     Route: 065
  4. PROCYTOX [Suspect]
     Active Substance: CYCLOPHOSPHAMIDE
     Indication: BREAST CANCER
     Dosage: 2000MG/VIAL
     Route: 042
  5. PREDNISONE. [Suspect]
     Active Substance: PREDNISONE
     Indication: ORGANISING PNEUMONIA
     Route: 065
  6. PREDNISONE. [Suspect]
     Active Substance: PREDNISONE
     Route: 065

REACTIONS (11)
  - Computerised tomogram thorax abnormal [Unknown]
  - Organising pneumonia [Unknown]
  - Bronchial polyp [Unknown]
  - Biopsy lung abnormal [Unknown]
  - Hypoxia [Unknown]
  - Therapeutic response decreased [Unknown]
  - Pulmonary oedema [Unknown]
  - Off label use [Unknown]
  - Multifocal micronodular pneumocyte hyperplasia [Unknown]
  - Respiratory failure [Unknown]
  - Product use in unapproved indication [Unknown]
